FAERS Safety Report 4742398-0 (Version None)
Quarter: 2005Q3

REPORT INFORMATION
  Report Type: 
  Country: None (occurrence: None)
  Receive Date: 20050808
  Receipt Date: 20050721
  Transmission Date: 20060218
  Serious: Yes (Death, Life-Threatening, Hospitalization, Other)
  Sender: FDA-Public Use
  Company Number: US_0412108775

PATIENT
  Age: 41 Year
  Sex: Male

DRUGS (47)
  1. ZYPREXA [Suspect]
     Dosage: 12.5 MG
     Dates: start: 20000310, end: 20040512
  2. SOMA [Concomitant]
  3. DIAZEPAM [Concomitant]
  4. FUROSEMIDE (FUROSEMIDE /00032601/) [Concomitant]
  5. LORATADINE [Concomitant]
  6. LORTAB [Concomitant]
  7. NEURONTIN [Concomitant]
  8. POTASSIUM CHLORIDE [Concomitant]
  9. PROTONIX [Concomitant]
  10. SYNTHROID [Concomitant]
  11. TEMAZEPAM [Concomitant]
  12. WARFARIN [Concomitant]
  13. WARFARIN [Concomitant]
  14. PRILOSEC [Concomitant]
  15. SPIRONOLACTONE [Concomitant]
  16. ZAROXOLYN [Concomitant]
  17. ZYRTEC [Concomitant]
  18. BACLOFEN [Concomitant]
  19. TAGAMET [Concomitant]
  20. PROPULSID [Concomitant]
  21. AUGMENTIN /00852501/ [Concomitant]
  22. CHLORPHENIRAMINE MALEATE [Concomitant]
  23. SULFAMETHOXAZOLE + TRIMETHOPRIM [Concomitant]
  24. ACETAMINOPHEN W/HYDROCODONE [Concomitant]
  25. FERROUS SULFATE TAB [Concomitant]
  26. SODIUM CHLORIDE [Concomitant]
  27. ALBUTEROL [Concomitant]
  28. SODIUM BICARBONATE [Concomitant]
  29. MYCOSTATIN [Concomitant]
  30. CYCLOBENZAPRINE HYDROCHLORIDE [Concomitant]
  31. KLOR-CON [Concomitant]
  32. CARISOPRODOL [Concomitant]
  33. PROPOXYPHENE NAPSYLATE [Concomitant]
  34. DIFLUCAN [Concomitant]
  35. CEPHALEXIN [Concomitant]
  36. SPECTRAVITE (THERAGRAN) [Concomitant]
  37. LEVAQUIN [Concomitant]
  38. PROMETHAZINE HCL [Concomitant]
  39. CLARITIN [Concomitant]
  40. CIPROFLOXACIN [Concomitant]
  41. GUAIFENESIN L.A. (GUAIFENESIN) [Concomitant]
  42. ALLEGRA [Concomitant]
  43. ALBUTEROL W/IPRATROPIUM [Concomitant]
  44. AVELOX [Concomitant]
  45. PREDNISONE [Concomitant]
  46. NOVOLOG [Concomitant]
  47. LANTUS [Concomitant]

REACTIONS (7)
  - BLOOD GLUCOSE FLUCTUATION [None]
  - CHOLECYSTITIS INFECTIVE [None]
  - DIABETES MELLITUS [None]
  - HEPATIC STEATOSIS [None]
  - PANCREATITIS [None]
  - SEPTIC SHOCK [None]
  - URINARY TRACT INFECTION [None]
